FAERS Safety Report 4782200-4 (Version None)
Quarter: 2005Q3

REPORT INFORMATION
  Report Type: 
  Country: None (occurrence: None)
  Receive Date: 20050927
  Receipt Date: 20050602
  Transmission Date: 20060218
  Serious: No
  Sender: FDA-Public Use
  Company Number: US_0506118251

PATIENT
  Sex: Female

DRUGS (1)
  1. STRATTERA [Suspect]
     Dosage: 40 MG DAY
     Dates: start: 20040501

REACTIONS (4)
  - DRY MOUTH [None]
  - URINARY HESITATION [None]
  - URINARY RETENTION [None]
  - URINE OUTPUT DECREASED [None]
